FAERS Safety Report 24873825 (Version 3)
Quarter: 2025Q2

REPORT INFORMATION
  Report Type: Report from Study
  Country: US (occurrence: US)
  Receive Date: 20250122
  Receipt Date: 20250508
  Transmission Date: 20250717
  Serious: No
  Sender: SUNOVION
  Company Number: US-SUMITOMO PHARMA SWITZERLAND GMBH-2025SPA000190

PATIENT

DRUGS (9)
  1. ORGOVYX [Suspect]
     Active Substance: RELUGOLIX
     Indication: Prostate cancer
     Dosage: 120 MG, QD
     Route: 048
     Dates: start: 202303
  2. ORGOVYX [Suspect]
     Active Substance: RELUGOLIX
     Dosage: 360 MG, SINGLE
     Route: 048
     Dates: start: 20241218, end: 20241218
  3. ORGOVYX [Suspect]
     Active Substance: RELUGOLIX
     Dosage: 120 MG, QD
     Route: 048
     Dates: start: 20241219
  4. XTANDI [Suspect]
     Active Substance: ENZALUTAMIDE
     Indication: Prostate cancer
     Route: 065
     Dates: start: 202502
  5. LISINOPRIL [Suspect]
     Active Substance: LISINOPRIL
     Indication: Hypertension
     Route: 065
     Dates: start: 201901
  6. DUTASTERIDE\TAMSULOSIN HYDROCHLORIDE [Suspect]
     Active Substance: DUTASTERIDE\TAMSULOSIN HYDROCHLORIDE
     Indication: Prostate cancer
     Route: 065
     Dates: start: 202303
  7. VITAMIN C [Suspect]
     Active Substance: ASCORBIC ACID
     Indication: Routine health maintenance
     Route: 065
  8. CALCIUM [Suspect]
     Active Substance: CALCIUM
     Indication: Routine health maintenance
     Route: 065
     Dates: start: 202303
  9. BICALUTAMIDE [Concomitant]
     Active Substance: BICALUTAMIDE
     Indication: Prostate cancer
     Route: 065
     Dates: start: 202302, end: 202502

REACTIONS (5)
  - Nocturia [Recovered/Resolved]
  - Alanine aminotransferase decreased [Unknown]
  - Hot flush [Not Recovered/Not Resolved]
  - Blood glucose increased [Unknown]
  - Therapy interrupted [Unknown]

NARRATIVE: CASE EVENT DATE: 20250201
